FAERS Safety Report 4383149-1 (Version None)
Quarter: 2004Q2

REPORT INFORMATION
  Report Type: 
  Country: None (occurrence: None)
  Receive Date: 20040623
  Receipt Date: 20040614
  Transmission Date: 20050107
  Serious: Yes (Hospitalization)
  Sender: FDA-Public Use
  Company Number: PHBS2004MX07823

PATIENT
  Age: 31 Year
  Sex: Female

DRUGS (3)
  1. TRILEPTAL [Suspect]
     Indication: BIPOLAR DISORDER
     Route: 048
  2. RIVOTRIL [Concomitant]
     Route: 048
  3. WELLBUTRIN [Concomitant]
     Route: 048

REACTIONS (4)
  - ASTHENIA [None]
  - DIZZINESS [None]
  - DYSPNOEA [None]
  - HYPERTENSION [None]
